FAERS Safety Report 8328958-9 (Version None)
Quarter: 2012Q2

REPORT INFORMATION
  Report Type: 
  Country: None (occurrence: None)
  Receive Date: 20120502
  Receipt Date: 20120424
  Transmission Date: 20120825
  Serious: Yes (Hospitalization)
  Sender: FDA-Public Use
  Company Number: US-BAYER-2012-020431

PATIENT
  Age: 27 Year
  Sex: Female
  Weight: 76.19 kg

DRUGS (8)
  1. YAZ [Suspect]
  2. YASMIN [Suspect]
  3. DILAUDID [Concomitant]
  4. DROSPIRENONE AND ETHINYL ESTRADIOL [Suspect]
     Indication: CONTRACEPTION
     Dosage: UNK
     Dates: start: 20091001, end: 20100201
  5. VICODIN [Concomitant]
     Dosage: 5-500 MILLIGRAMS EVERY 4 HOURS OR AS NEEDED
     Route: 048
  6. AMBIEN [Concomitant]
     Indication: SLEEP DISORDER THERAPY
     Dosage: UNK UNK, HS
     Route: 048
     Dates: start: 20091001
  7. KEFLEX [Concomitant]
     Indication: URINARY TRACT INFECTION
     Dosage: 1 CAPSULE
     Route: 048
  8. CELEXA [Concomitant]
     Indication: MOOD SWINGS
     Dosage: UNK
     Route: 048
     Dates: start: 20080101, end: 20090101

REACTIONS (1)
  - PULMONARY EMBOLISM [None]
